FAERS Safety Report 10136802 (Version 2)
Quarter: 2014Q2

REPORT INFORMATION
  Report Type: Spontaneous
  Country: US (occurrence: None)
  Receive Date: 20140425
  Receipt Date: 20140508
  Transmission Date: 20141212
  Serious: Yes (Death, Hospitalization)
  Sender: FDA-Public Use
  Company Number: UTC-047275

PATIENT
  Age: 65 Year
  Sex: Female

DRUGS (1)
  1. TYVASO [Suspect]
     Indication: PULMONARY ARTERIAL HYPERTENSION
     Dosage: 216 MCG (54 MCG, 4 IN 1 D
     Route: 055
     Dates: start: 20130116

REACTIONS (5)
  - Pulmonary arterial hypertension [None]
  - Condition aggravated [None]
  - Scleroderma [None]
  - Fluid retention [None]
  - Respiratory failure [None]
